FAERS Safety Report 21024449 (Version 1)
Quarter: 2022Q2

REPORT INFORMATION
  Report Type: Spontaneous
  Country: JP (occurrence: JP)
  Receive Date: 20220629
  Receipt Date: 20220629
  Transmission Date: 20220721
  Serious: Yes (Hospitalization)
  Sender: FDA-Public Use
  Company Number: JP-MPKK-JPN202200571_P_1

PATIENT
  Age: 58 Year
  Sex: Male
  Weight: 70 kg

DRUGS (15)
  1. NORSPAN [Suspect]
     Active Substance: BUPRENORPHINE
     Indication: Intervertebral disc protrusion
     Dosage: 5 MICROGRAM, Q1H
     Route: 062
     Dates: start: 20210521, end: 20210611
  2. NORSPAN [Suspect]
     Active Substance: BUPRENORPHINE
     Dosage: 10 MICROGRAM, Q1H
     Route: 062
     Dates: start: 20210507, end: 20210520
  3. NORSPAN [Suspect]
     Active Substance: BUPRENORPHINE
     Dosage: 20 MICROGRAM, Q1H
     Route: 062
     Dates: start: 202012, end: 20210506
  4. MIROGABALIN BESYLATE [Suspect]
     Active Substance: MIROGABALIN BESYLATE
     Indication: Product used for unknown indication
     Dosage: 20 MILLIGRAM, BID
     Route: 048
     Dates: start: 20210423, end: 20210521
  5. CARVEDILOL [Concomitant]
     Active Substance: CARVEDILOL
     Route: 048
  6. ASPIRIN [Concomitant]
     Active Substance: ASPIRIN
     Route: 048
  7. HERBESSER [Concomitant]
     Active Substance: DILTIAZEM HYDROCHLORIDE
     Route: 048
  8. LINZESS [Concomitant]
     Active Substance: LINACLOTIDE
     Route: 048
  9. ELDECALCITOL [Concomitant]
     Active Substance: ELDECALCITOL
     Route: 048
  10. ISOSORBIDE DINITRATE [Concomitant]
     Active Substance: ISOSORBIDE DINITRATE
     Route: 061
  11. FUROSEMIDE [Concomitant]
     Active Substance: FUROSEMIDE
     Route: 065
  12. SODIUM FERROUS CITRATE [Concomitant]
     Active Substance: SODIUM FERROUS CITRATE
     Route: 048
  13. SPIRONOLACTONE [Concomitant]
     Active Substance: SPIRONOLACTONE
     Route: 048
  14. ACETAMINOPHEN\TRAMADOL HYDROCHLORIDE [Concomitant]
     Active Substance: ACETAMINOPHEN\TRAMADOL HYDROCHLORIDE
     Route: 048
  15. PREGABALIN [Concomitant]
     Active Substance: PREGABALIN
     Route: 048
     Dates: end: 20210422

REACTIONS (4)
  - Renal disorder [Not Recovered/Not Resolved]
  - Blood creatinine increased [Unknown]
  - Oedema peripheral [Recovering/Resolving]
  - Generalised oedema [Unknown]

NARRATIVE: CASE EVENT DATE: 20210507
